FAERS Safety Report 8282423-6 (Version None)
Quarter: 2012Q2

REPORT INFORMATION
  Report Type: 
  Country: None (occurrence: None)
  Receive Date: 20120413
  Receipt Date: 20120404
  Transmission Date: 20120825
  Serious: Yes (Other)
  Sender: FDA-Public Use
  Company Number: FR-JNJFOC-20120402978

PATIENT
  Age: 19 Year
  Sex: Female

DRUGS (1)
  1. REMICADE [Suspect]
     Indication: JUVENILE ARTHRITIS
     Route: 042

REACTIONS (6)
  - HYPOGLYCAEMIA [None]
  - ABDOMINAL RIGIDITY [None]
  - HYPOTENSION [None]
  - INFUSION RELATED REACTION [None]
  - GASTROINTESTINAL PAIN [None]
  - DIZZINESS [None]
